FAERS Safety Report 21271017 (Version 1)
Quarter: 2022Q3

REPORT INFORMATION
  Report Type: Spontaneous
  Country: CA (occurrence: CA)
  Receive Date: 20220830
  Receipt Date: 20220830
  Transmission Date: 20221027
  Serious: Yes (Death, Other)
  Sender: FDA-Public Use
  Company Number: CA-PFIZER INC-2018297360

PATIENT
  Age: 68 Year
  Sex: Female

DRUGS (9)
  1. XELJANZ [Suspect]
     Active Substance: TOFACITINIB CITRATE
     Indication: Rheumatoid arthritis
     Dosage: 5 MG, 2X/DAY (BID)
     Route: 048
     Dates: start: 20180618
  2. FISH OIL [Concomitant]
     Active Substance: FISH OIL
     Dosage: UNK
     Route: 065
  3. HYDROCHLOROTHIAZIDE [Concomitant]
     Active Substance: HYDROCHLOROTHIAZIDE
     Dosage: UNK
     Route: 065
  4. VENTOLIN [Concomitant]
     Active Substance: ALBUTEROL SULFATE
     Indication: Asthma
     Dosage: UNK
     Route: 065
  5. ADVAIR HFA [Concomitant]
     Active Substance: FLUTICASONE PROPIONATE\SALMETEROL XINAFOATE
     Indication: Asthma
     Dosage: UNK, 2X/DAY
     Route: 065
  6. ZANTAC [Concomitant]
     Active Substance: RANITIDINE HYDROCHLORIDE
     Indication: Abdominal pain upper
     Dosage: UNK, 2X/DAY
  7. CRESTOR [Concomitant]
     Active Substance: ROSUVASTATIN CALCIUM
     Dosage: UNK
     Route: 065
  8. ADVIL [Concomitant]
     Active Substance: IBUPROFEN
     Indication: Pain
     Dosage: UNK UNK, DAILY
  9. TRAMADOL [Concomitant]
     Active Substance: TRAMADOL
     Dosage: 2 DF, DAILY
     Route: 048

REACTIONS (16)
  - Death [Fatal]
  - Therapeutic product effect incomplete [Unknown]
  - Hair growth abnormal [Unknown]
  - Weight increased [Unknown]
  - Abdominal discomfort [Unknown]
  - Diarrhoea [Unknown]
  - Nail growth abnormal [Unknown]
  - Fatigue [Unknown]
  - Initial insomnia [Unknown]
  - Pruritus [Not Recovered/Not Resolved]
  - Dry mouth [Unknown]
  - Pain in extremity [Unknown]
  - Pain [Unknown]
  - Musculoskeletal stiffness [Unknown]
  - Loss of personal independence in daily activities [Unknown]
  - Constipation [Unknown]

NARRATIVE: CASE EVENT DATE: 20180101
